FAERS Safety Report 8531306-2 (Version None)
Quarter: 2012Q3

REPORT INFORMATION
  Report Type: 
  Country: None (occurrence: None)
  Receive Date: 20120723
  Receipt Date: 20120712
  Transmission Date: 20120928
  Serious: Yes (Hospitalization)
  Sender: FDA-Public Use
  Company Number: SE-NOVOPROD-355809

PATIENT
  Age: 60 Year
  Sex: Male

DRUGS (7)
  1. LOPERAMIDE [Concomitant]
  2. DIGOXIN [Concomitant]
  3. ASPIRIN [Concomitant]
  4. VICTOZA [Suspect]
     Indication: DIABETES MELLITUS
     Dosage: 1.2 MG, QD
     Route: 065
     Dates: start: 20120501, end: 20120520
  5. LIPITOR [Concomitant]
  6. METOPROLOL SUCCINATE [Concomitant]
  7. INSULATARD NPH HUMAN [Concomitant]

REACTIONS (3)
  - DIARRHOEA [None]
  - HYPONATRAEMIA [None]
  - BLOOD CREATININE INCREASED [None]
